FAERS Safety Report 10741501 (Version 1)
Quarter: 2015Q1

REPORT INFORMATION
  Report Type: Report from Study
  Country: CZ (occurrence: CZ)
  Receive Date: 20150127
  Receipt Date: 20150127
  Transmission Date: 20150721
  Serious: Yes (Hospitalization)
  Sender: FDA-Public Use
  Company Number: CZ-JNJFOC-20150115150

PATIENT
  Age: 66 Year
  Sex: Female

DRUGS (1)
  1. SIMPONI [Suspect]
     Active Substance: GOLIMUMAB
     Indication: RHEUMATOID ARTHRITIS
     Route: 058
     Dates: start: 20130807, end: 20141022

REACTIONS (1)
  - Escherichia sepsis [Recovering/Resolving]

NARRATIVE: CASE EVENT DATE: 20141126
